FAERS Safety Report 21729010 (Version 1)
Quarter: 2022Q4

REPORT INFORMATION
  Report Type: Spontaneous
  Country: US (occurrence: US)
  Receive Date: 20221214
  Receipt Date: 20221214
  Transmission Date: 20230113
  Serious: No
  Sender: FDA-Public Use
  Company Number: US-ALLERGAN-2235908US

PATIENT
  Age: 82 Year
  Sex: Female
  Weight: 40.823 kg

DRUGS (3)
  1. DALVANCE [Suspect]
     Active Substance: DALBAVANCIN
     Indication: Soft tissue infection
     Dosage: UNK
     Route: 042
     Dates: start: 20221027, end: 20221027
  2. DALVANCE [Suspect]
     Active Substance: DALBAVANCIN
     Indication: Abscess limb
  3. COSENTYX [Concomitant]
     Active Substance: SECUKINUMAB
     Indication: Psoriatic arthropathy
     Dosage: UNK

REACTIONS (1)
  - Chest pain [Recovered/Resolved]

NARRATIVE: CASE EVENT DATE: 20221027
